FAERS Safety Report 8783447 (Version 1)
Quarter: 2012Q4

REPORT INFORMATION
  Report Type: 
  Country: US (occurrence: US)
  Receive Date: 20120913
  Receipt Date: 20120913
  Transmission Date: 20130627
  Serious: Yes (Death)
  Sender: FDA-Public Use
  Company Number: US-VERTEX PHARMACEUTICAL INC.-2012-020847

PATIENT

DRUGS (3)
  1. VX-950 [Suspect]
     Indication: HEPATITIS C
     Dosage: UNK
     Dates: start: 20120322, end: 20120716
  2. PEGASYS [Concomitant]
     Dosage: 180 ?g, UNK
     Dates: start: 20120322, end: 20120730
  3. RIBAVIRIN [Concomitant]
     Dosage: 200 mg, UNK
     Dates: start: 20120322, end: 20120730

REACTIONS (1)
  - Death [Fatal]
